FAERS Safety Report 6919257-8 (Version None)
Quarter: 2010Q3

REPORT INFORMATION
  Report Type: 
  Country: None (occurrence: None)
  Receive Date: 20100811
  Receipt Date: 20100712
  Transmission Date: 20110219
  Serious: Yes (Hospitalization)
  Sender: FDA-Public Use
  Company Number: DE-SANOFI-AVENTIS-200910700DE

PATIENT
  Age: 79 Year
  Sex: Male

DRUGS (9)
  1. FUROSEMIDE [Suspect]
     Route: 048
  2. RAMIPRIL [Suspect]
     Route: 048
  3. CAPTOPRIL [Suspect]
     Route: 048
  4. FALICARD ^DRESDEN^ [Suspect]
     Route: 048
  5. THEOPHYLLINE [Suspect]
     Indication: CHRONIC OBSTRUCTIVE PULMONARY DISEASE
     Dosage: DOSE AS USED: 400MG, 2 IN DAY
     Route: 048
     Dates: end: 20090119
  6. XIPAMIDE [Suspect]
     Route: 048
     Dates: end: 20090101
  7. XIPAMIDE [Suspect]
     Route: 048
     Dates: start: 20090101
  8. DOMPERIDONE [Concomitant]
     Dosage: DOSE AS USED: 10MG, 3 IN DAY
     Route: 048
  9. PANTOZOL [Concomitant]
     Dosage: DOSE AS USED: 40MG, 2 IN DAY
     Route: 048
     Dates: start: 20061201

REACTIONS (2)
  - HYPOTENSION [None]
  - TACHYCARDIA [None]
